FAERS Safety Report 7170521-X (Version None)
Quarter: 2010Q4

REPORT INFORMATION
  Report Type: 
  Country: None (occurrence: None)
  Receive Date: 20101217
  Receipt Date: 20101207
  Transmission Date: 20110411
  Serious: Yes (Congenital Anomaly, Other)
  Sender: FDA-Public Use
  Company Number: PHHO2010JP18932

PATIENT
  Sex: Male

DRUGS (1)
  1. CERTICAN [Suspect]
     Indication: RENAL TRANSPLANT
     Route: 065

REACTIONS (3)
  - CRANIOSYNOSTOSIS [None]
  - DRUG EXPOSURE DURING PREGNANCY [None]
  - PATERNAL DRUGS AFFECTING FOETUS [None]
